FAERS Safety Report 5247802-X (Version None)
Quarter: 2007Q1

REPORT INFORMATION
  Report Type: 
  Country: None (occurrence: None)
  Receive Date: 20070227
  Receipt Date: 20070222
  Transmission Date: 20070707
  Serious: Yes (Death, Life-Threatening, Hospitalization)
  Sender: FDA-Public Use
  Company Number: 2007UW00737

PATIENT
  Age: 55 Year
  Sex: Female

DRUGS (5)
  1. CRESTOR [Suspect]
     Indication: HYPERCHOLESTEROLAEMIA
     Route: 048
     Dates: start: 20050805
  2. METFORMIN HCL [Concomitant]
     Indication: DIABETES MELLITUS
  3. GLICLAZIDE [Concomitant]
     Indication: DIABETES MELLITUS
  4. ATACAND [Concomitant]
     Indication: DIABETES MELLITUS
  5. ASPIRIN [Concomitant]
     Indication: DIABETES MELLITUS

REACTIONS (4)
  - CARDIAC TAMPONADE [None]
  - CHEST PAIN [None]
  - CORONARY ARTERIAL STENT INSERTION [None]
  - MYOCARDIAL INFARCTION [None]
